FAERS Safety Report 15120782 (Version 1)
Quarter: 2018Q3

REPORT INFORMATION
  Report Type: Spontaneous
  Country: US (occurrence: US)
  Receive Date: 20180709
  Receipt Date: 20180709
  Transmission Date: 20181010
  Serious: No
  Sender: FDA-Public Use
  Company Number: US-SA-2018SA172471

PATIENT
  Age: 56 Year
  Sex: Female

DRUGS (27)
  1. GABAPENTIN. [Concomitant]
     Active Substance: GABAPENTIN
  2. METFORMIN HYDROCHLORIDE. [Concomitant]
     Active Substance: METFORMIN HYDROCHLORIDE
  3. CLONAZEPAM. [Concomitant]
     Active Substance: CLONAZEPAM
  4. OMEPRAZOLE. [Concomitant]
     Active Substance: OMEPRAZOLE
  5. AUBAGIO [Suspect]
     Active Substance: TERIFLUNOMIDE
     Indication: MULTIPLE SCLEROSIS
     Dosage: 14 MG, QD
     Dates: start: 20170329
  6. SEROQUEL [Concomitant]
     Active Substance: QUETIAPINE FUMARATE
  7. AMBIEN [Concomitant]
     Active Substance: ZOLPIDEM TARTRATE
  8. PAROXETINE HYDROCHLORIDE. [Concomitant]
     Active Substance: PAROXETINE HYDROCHLORIDE
  9. GLIPIZIDE. [Concomitant]
     Active Substance: GLIPIZIDE
  10. ASPIRIN 81 [Concomitant]
     Active Substance: ASPIRIN
  11. LAMOTRIGINE. [Concomitant]
     Active Substance: LAMOTRIGINE
  12. PERCOCET [OXYCODONE HYDROCHLORIDE;PARACETAMOL] [Concomitant]
  13. ATORVASTATIN [Concomitant]
     Active Substance: ATORVASTATIN
  14. ESCITALOPRAM OXALATE. [Concomitant]
     Active Substance: ESCITALOPRAM OXALATE
  15. TRAZODON [Concomitant]
     Active Substance: TRAZODONE HYDROCHLORIDE
  16. LEVOTHYROXIN [Concomitant]
     Active Substance: LEVOTHYROXINE
  17. OXYCODONE AND ACETAMINOPHEN [Concomitant]
     Active Substance: ACETAMINOPHEN\OXYCODONE HYDROCHLORIDE
  18. HYDROXYZINE HCL [Concomitant]
     Active Substance: HYDROXYZINE HYDROCHLORIDE
  19. CARBAMAZEPINE. [Concomitant]
     Active Substance: CARBAMAZEPINE
  20. AMANTADINE. [Concomitant]
     Active Substance: AMANTADINE HYDROCHLORIDE
  21. BACLOFEN. [Concomitant]
     Active Substance: BACLOFEN
  22. LACTULOSE. [Concomitant]
     Active Substance: LACTULOSE
  23. CLONAZEPAM. [Concomitant]
     Active Substance: CLONAZEPAM
  24. LEVOTHYROXINE SODIUM. [Concomitant]
     Active Substance: LEVOTHYROXINE SODIUM
  25. VITAMIN D3 [Concomitant]
     Active Substance: CHOLECALCIFEROL
  26. ZOLPIDEM [Concomitant]
     Active Substance: ZOLPIDEM\ZOLPIDEM TARTRATE
  27. VITAMIN B12 + FOLIC ACID [Concomitant]

REACTIONS (1)
  - Malaise [Unknown]
